FAERS Safety Report 14935902 (Version 2)
Quarter: 2018Q2

REPORT INFORMATION
  Report Type: Spontaneous
  Country: US (occurrence: US)
  Receive Date: 20180524
  Receipt Date: 20180604
  Transmission Date: 20180711
  Serious: No
  Sender: FDA-Public Use
  Company Number: US-ACTELION-A-NJ2018-171744

PATIENT
  Age: 68 Year
  Sex: Male

DRUGS (1)
  1. VALCHLOR [Suspect]
     Active Substance: MECHLORETHAMINE
     Indication: MYCOSIS FUNGOIDES
     Dosage: UNK
     Route: 061
     Dates: start: 20180302

REACTIONS (7)
  - Skin discolouration [Unknown]
  - Skin abrasion [Unknown]
  - Application site erythema [Unknown]
  - Application site pruritus [Unknown]
  - Condition aggravated [Unknown]
  - Skin lesion [Unknown]
  - Application site scab [Unknown]

NARRATIVE: CASE EVENT DATE: 20180515
